FAERS Safety Report 16647979 (Version 1)
Quarter: 2019Q3

REPORT INFORMATION
  Report Type: Spontaneous
  Country: US (occurrence: US)
  Receive Date: 20190730
  Receipt Date: 20190730
  Transmission Date: 20191004
  Serious: Yes (Other)
  Sender: FDA-Public Use
  Company Number: US-HISAMITSU-2019-US-013242

PATIENT
  Sex: Female

DRUGS (1)
  1. SALONPAS PAIN RELIEVING GEL-PATCH HOT [Suspect]
     Active Substance: CAPSICUM OLEORESIN\MENTHOL
     Indication: ANALGESIC THERAPY
     Route: 061

REACTIONS (1)
  - Hypersensitivity [Unknown]
